FAERS Safety Report 5494449-6 (Version None)
Quarter: 2007Q4

REPORT INFORMATION
  Report Type: 
  Country: None (occurrence: None)
  Receive Date: 20071022
  Receipt Date: 20071022
  Transmission Date: 20080405
  Serious: No
  Sender: FDA-Public Use
  Company Number: None

PATIENT
  Sex: Female
  Weight: 69.8539 kg

DRUGS (1)
  1. CHANTIX [Suspect]
     Indication: SMOKER
     Dates: start: 20070303, end: 20070403

REACTIONS (15)
  - ARTHRALGIA [None]
  - BACK PAIN [None]
  - CRYING [None]
  - DISTURBANCE IN ATTENTION [None]
  - FRUSTRATION [None]
  - HEADACHE [None]
  - HOT FLUSH [None]
  - MEMORY IMPAIRMENT [None]
  - MOTION SICKNESS [None]
  - MUSCULOSKELETAL PAIN [None]
  - POOR QUALITY SLEEP [None]
  - POST-TRAUMATIC STRESS DISORDER [None]
  - SUICIDAL IDEATION [None]
  - TENDERNESS [None]
  - TREMOR [None]
